FAERS Safety Report 6539495-6 (Version None)
Quarter: 2010Q1

REPORT INFORMATION
  Report Type: 
  Country: None (occurrence: None)
  Receive Date: 20100115
  Receipt Date: 20100113
  Transmission Date: 20100710
  Serious: Yes (Other)
  Sender: FDA-Public Use
  Company Number: A0839226A

PATIENT
  Age: 26 Year
  Sex: Male

DRUGS (2)
  1. PAXIL [Suspect]
     Dosage: 80MG PER DAY
     Route: 048
     Dates: start: 20051001, end: 20071101
  2. SYNTHROID [Concomitant]

REACTIONS (6)
  - ANXIETY [None]
  - BRAIN INJURY [None]
  - HYPERTHERMIA [None]
  - MIGRAINE [None]
  - NAUSEA [None]
  - WITHDRAWAL SYNDROME [None]
